FAERS Safety Report 17250823 (Version 1)
Quarter: 2020Q1

REPORT INFORMATION
  Report Type: Spontaneous
  Country: US (occurrence: US)
  Receive Date: 20200109
  Receipt Date: 20200109
  Transmission Date: 20200409
  Serious: Yes (Hospitalization, Other)
  Sender: FDA-Public Use
  Company Number: US-009507513-2001USA002315

PATIENT
  Age: 81 Year
  Sex: Female

DRUGS (2)
  1. CUBICIN [Suspect]
     Active Substance: DAPTOMYCIN
     Dosage: UNK
     Route: 042
  2. CEFTRIAXONE. [Concomitant]
     Active Substance: CEFTRIAXONE
     Dosage: UNK

REACTIONS (2)
  - Respiratory failure [Recovering/Resolving]
  - Eosinophilic pneumonia acute [Recovering/Resolving]
